FAERS Safety Report 11465695 (Version 1)
Quarter: 2015Q3

REPORT INFORMATION
  Report Type: Report from Study
  Country: BR (occurrence: BR)
  Receive Date: 20150907
  Receipt Date: 20150907
  Transmission Date: 20151125
  Serious: Yes (Other)
  Sender: FDA-Public Use
  Company Number: BR-BIOGENIDEC-2015BI121856

PATIENT
  Age: 40 Year
  Sex: Female
  Weight: 95 kg

DRUGS (8)
  1. AMITRIPTILINE [Concomitant]
     Dates: start: 2014
  2. PERLUTAN [Concomitant]
     Indication: CONTRACEPTION
  3. SIMVASTATIN. [Concomitant]
     Active Substance: SIMVASTATIN
     Dates: start: 2014
  4. BACLOFEN. [Concomitant]
     Active Substance: BACLOFEN
     Dates: start: 2007
  5. VITAMIN D [Concomitant]
     Active Substance: CHOLECALCIFEROL
  6. BUPROPION. [Concomitant]
     Active Substance: BUPROPION
     Dates: start: 2014, end: 2014
  7. TYSABRI [Suspect]
     Active Substance: NATALIZUMAB
     Indication: MULTIPLE SCLEROSIS
     Route: 042
     Dates: start: 20111101
  8. MANTIDAN (AMANTADINE HYDROCHLORIDE) [Concomitant]
     Dates: start: 2007

REACTIONS (2)
  - Seizure [Recovered/Resolved]
  - Blood glucose abnormal [Not Recovered/Not Resolved]

NARRATIVE: CASE EVENT DATE: 2014
